FAERS Safety Report 5214343-5 (Version None)
Quarter: 2007Q1

REPORT INFORMATION
  Report Type: 
  Country: None (occurrence: None)
  Receive Date: 20070122
  Receipt Date: 20070111
  Transmission Date: 20070707
  Serious: Yes (Hospitalization)
  Sender: FDA-Public Use
  Company Number: JP-AMGEN-US206600

PATIENT
  Age: 65 Year
  Sex: Female

DRUGS (1)
  1. SENSIPAR [Suspect]
     Indication: HYPERPARATHYROIDISM SECONDARY
     Dates: start: 20060101, end: 20060101

REACTIONS (5)
  - AMMONIA INCREASED [None]
  - CENTRAL NERVOUS SYSTEM INFECTION [None]
  - GASTRIC HAEMORRHAGE [None]
  - HEPATIC INFECTION [None]
  - LOSS OF CONSCIOUSNESS [None]
